FAERS Safety Report 11718994 (Version 4)
Quarter: 2015Q4

REPORT INFORMATION
  Report Type: Report from Study
  Country: US (occurrence: US)
  Receive Date: 20151110
  Receipt Date: 20151126
  Transmission Date: 20160304
  Serious: Yes (Hospitalization, Other)
  Sender: FDA-Public Use
  Company Number: US-GILEAD-2015-0181295

PATIENT
  Age: 71 Year
  Sex: Female

DRUGS (3)
  1. WARFARIN [Concomitant]
     Active Substance: WARFARIN
  2. AMBRISENTAN [Suspect]
     Active Substance: AMBRISENTAN
     Indication: PRODUCT USED FOR UNKNOWN INDICATION
     Dosage: 10 MG, QD
     Route: 065
     Dates: start: 20121120
  3. REMODULIN [Concomitant]
     Active Substance: TREPROSTINIL

REACTIONS (9)
  - Infection [Unknown]
  - Syncope [Unknown]
  - Seizure [Unknown]
  - Thrombosis [Unknown]
  - Peripheral swelling [Unknown]
  - Cellulitis [Unknown]
  - Hypoxia [Unknown]
  - Neoplasm malignant [Unknown]
  - Pain in extremity [Unknown]
